FAERS Safety Report 10039531 (Version 2)
Quarter: 2015Q1

REPORT INFORMATION
  Report Type: Report from Study
  Country: NL (occurrence: NL)
  Receive Date: 20140326
  Receipt Date: 20150209
  Transmission Date: 20150720
  Serious: Yes (Death)
  Sender: FDA-Public Use
  Company Number: PHHY2014NL036613

PATIENT
  Sex: Female

DRUGS (2)
  1. TOBI [Suspect]
     Active Substance: TOBRAMYCIN
     Indication: CHRONIC OBSTRUCTIVE PULMONARY DISEASE
  2. TOBI [Suspect]
     Active Substance: TOBRAMYCIN
     Indication: LUNG NEOPLASM MALIGNANT
     Dosage: UNK
     Route: 055

REACTIONS (2)
  - Death [Fatal]
  - Product use issue [Unknown]
